FAERS Safety Report 9410729 (Version 3)
Quarter: 2014Q1

REPORT INFORMATION
  Report Type: Spontaneous
  Country: US (occurrence: US)
  Receive Date: 20130719
  Receipt Date: 20140224
  Transmission Date: 20141002
  Serious: Yes (Death)
  Sender: FDA-Public Use
  Company Number: US-B.I. PHARMACEUTICALS,INC./RIDGEFIELD-2013-BI-20943BP

PATIENT
  Age: 70 Year
  Sex: Female
  Weight: 61.69 kg

DRUGS (10)
  1. PRADAXA [Suspect]
     Indication: CEREBROVASCULAR ACCIDENT PROPHYLAXIS
     Dosage: 300 MG
     Route: 048
     Dates: start: 20120104, end: 201206
  2. PRADAXA [Suspect]
     Indication: THROMBOSIS PROPHYLAXIS
  3. TRAZODONE [Concomitant]
     Route: 065
  4. ZOLPIDEM [Concomitant]
     Route: 065
  5. POTASSIUM CL [Concomitant]
     Route: 065
  6. HYDROCODONE/APAP [Concomitant]
     Route: 065
  7. CYMBALTA [Concomitant]
     Route: 065
  8. METOPROLOL [Concomitant]
     Route: 065
  9. AMLODIPINE [Concomitant]
     Route: 065
  10. DIPHEN/ATROP [Concomitant]
     Route: 065

REACTIONS (3)
  - Cardio-respiratory arrest [Fatal]
  - Gastrointestinal haemorrhage [Fatal]
  - Renal haemorrhage [Fatal]
